FAERS Safety Report 6516282-6 (Version None)
Quarter: 2009Q4

REPORT INFORMATION
  Report Type: 
  Country: None (occurrence: None)
  Receive Date: 20091223
  Receipt Date: 20091210
  Transmission Date: 20100525
  Serious: Yes (Hospitalization)
  Sender: FDA-Public Use
  Company Number: US-ROCHE-675642

PATIENT
  Sex: Male
  Weight: 96.2 kg

DRUGS (16)
  1. BEVACIZUMAB [Suspect]
     Dosage: DOSE FORM: INFUSION, ROUTE, DOSE FORM, DOSE AND FREQUENCY TAKEN FROM PROTOCOL.
     Route: 042
     Dates: start: 20040910, end: 20091208
  2. ERLOTINIB [Suspect]
     Dosage: ROUTE, DOSE AND FREQUENCY TAKEN FROM PROTOCOL.  FREQUENCY: DAILY
     Route: 048
     Dates: start: 20040910, end: 20091208
  3. RYTHMOL [Concomitant]
  4. LOVASTATIN [Concomitant]
     Dosage: FREQUENCY: QD
  5. PREVACID [Concomitant]
     Dosage: FREQUENCY: QD
  6. VALIUM [Concomitant]
     Indication: VERTIGO
     Dosage: FREQUENCY: PRN
  7. SOMA [Concomitant]
     Dosage: DOSE: 350MG 6H, FREQUENCY: PRN
  8. ASPIRIN [Concomitant]
     Dosage: STOPPED ON AN UNKNOWN DATE 4 MONTHS AGO.
     Dates: start: 20040720
  9. METAMUCIL [Concomitant]
     Dates: start: 20040720
  10. HUMULIN 70/30 [Concomitant]
     Dates: start: 20040720
  11. HUMULIN R [Concomitant]
     Dates: start: 20040720
  12. ZOCOR [Concomitant]
  13. ENOXAPARIN [Concomitant]
     Dates: start: 20060704
  14. LEVAQUIN [Concomitant]
     Dates: start: 20060704
  15. ALLOPURINOL [Concomitant]
     Dates: start: 20060704
  16. ZELNORM [Concomitant]
     Dates: start: 20060704

REACTIONS (1)
  - CEREBROVASCULAR ACCIDENT [None]
